FAERS Safety Report 5917422-X (Version None)
Quarter: 2008Q4

REPORT INFORMATION
  Report Type: 
  Country: None (occurrence: None)
  Receive Date: 20081014
  Receipt Date: 20081007
  Transmission Date: 20090506
  Serious: Yes (Congenital Anomaly)
  Sender: FDA-Public Use
  Company Number: B0540547A

PATIENT

DRUGS (2)
  1. LAMICTAL [Suspect]
     Indication: EPILEPSY
     Dosage: 100MG PER DAY
  2. SPECIAFOLDINE [Suspect]
     Dosage: 1UNIT PER DAY

REACTIONS (2)
  - CLEFT LIP [None]
  - DRUG EXPOSURE DURING PREGNANCY [None]
